FAERS Safety Report 12717381 (Version 6)
Quarter: 2017Q1

REPORT INFORMATION
  Report Type: Report from Study
  Country: JP (occurrence: JP)
  Receive Date: 20160906
  Receipt Date: 20170320
  Transmission Date: 20170428
  Serious: Yes (Hospitalization, Disabling, Other)
  Sender: FDA-Public Use
  Company Number: JP-GLAXOSMITHKLINE-JP2015125503

PATIENT
  Age: 52 Year
  Sex: Female
  Weight: 62 kg

DRUGS (23)
  1. HYALURONATE SODIUM [Concomitant]
     Active Substance: HYALURONATE SODIUM
     Dosage: 2 GTT, UNK
     Route: 047
     Dates: start: 20150608
  2. DENOSUMAB [Suspect]
     Active Substance: DENOSUMAB
     Indication: BREAST CANCER
     Dosage: 120 MG, UNK
     Route: 058
     Dates: start: 20110224, end: 20150817
  3. BEPOTASTINE BESILATE [Concomitant]
     Active Substance: BEPOTASTINE BESILATE
     Dosage: 10 MG, UNK
     Route: 048
     Dates: start: 20140314
  4. FLUOROMETHOLONE. [Concomitant]
     Active Substance: FLUOROMETHOLONE
     Dosage: 2 GTT, UNK
     Route: 047
     Dates: start: 20150608
  5. PREGABALIN. [Concomitant]
     Active Substance: PREGABALIN
     Dosage: 75 MG, UNK
     Route: 048
     Dates: start: 20120618
  6. LANSOPRAZOLE. [Suspect]
     Active Substance: LANSOPRAZOLE
     Indication: PRODUCT USED FOR UNKNOWN INDICATION
     Dosage: UNK
     Route: 065
     Dates: start: 2011
  7. LYRICA [Concomitant]
     Active Substance: PREGABALIN
     Dosage: 75 MG, QD
     Route: 048
     Dates: start: 20120618
  8. MOSAPRIDE CITRATE [Concomitant]
     Active Substance: MOSAPRIDE CITRATE
     Dosage: 5 MG, TID
     Route: 048
     Dates: start: 20120820
  9. ACETAMINOPHEN. [Concomitant]
     Active Substance: ACETAMINOPHEN
     Dosage: 400 MG, UNK
     Route: 048
     Dates: start: 201412
  10. TAMOXIFEN [Suspect]
     Active Substance: TAMOXIFEN
     Indication: PRODUCT USED FOR UNKNOWN INDICATION
     Dosage: 1 UNK, QD
     Route: 065
  11. LEVOCETIRIZINE HYDROCHLORIDE [Concomitant]
     Active Substance: LEVOCETIRIZINE HYDROCHLORIDE
     Dosage: 5 MG, UNK
     Route: 048
     Dates: start: 20140314
  12. VITAMIN D3 [Concomitant]
     Active Substance: CHOLECALCIFEROL
     Dosage: 400 IU, UNK
     Route: 048
     Dates: start: 20110224
  13. BIOTIN [Concomitant]
     Active Substance: BIOTIN
     Dosage: 0.5 MG, UNK
     Route: 048
     Dates: start: 20140314
  14. HEPARINOID [Concomitant]
     Active Substance: CHONDROITIN SULFATE (BOVINE)
     Dosage: 25 G, UNK
     Route: 058
     Dates: start: 20150309
  15. LEVOCABASTINE HYDROCHLORIDE [Concomitant]
     Active Substance: LEVOCABASTINE HYDROCHLORIDE
     Dosage: 2 GTT, UNK
     Route: 047
     Dates: start: 20150608
  16. CALCIUM [Concomitant]
     Active Substance: CALCIUM
     Dosage: 600 MG, UNK
     Route: 048
     Dates: start: 20110224
  17. CLINDAMYCIN PHOSPHATE. [Concomitant]
     Active Substance: CLINDAMYCIN PHOSPHATE
     Dosage: 10 G, UNK
     Route: 062
     Dates: start: 20140314
  18. ROXITHROMYCIN [Concomitant]
     Active Substance: ROXITHROMYCIN
     Dosage: 150 MG, UNK
     Route: 048
     Dates: start: 20140314
  19. REBAMIPIDE [Concomitant]
     Active Substance: REBAMIPIDE
     Dosage: 2 GTT - 100 MG, UNK
     Dates: start: 20150608
  20. DEXAMETHASONE. [Suspect]
     Active Substance: DEXAMETHASONE
     Indication: PRODUCT USED FOR UNKNOWN INDICATION
     Dosage: UNK
     Route: 065
     Dates: start: 201102, end: 201108
  21. FLUDROXYCORTIDE [Concomitant]
     Dosage: 0.3 G, UNK
     Route: 062
     Dates: start: 20140929
  22. CALONAL [Concomitant]
     Active Substance: ACETAMINOPHEN
     Indication: ARTHRALGIA
     Dosage: 400 MG, AS NECESSARY
     Route: 048
     Dates: start: 201412
  23. MAGNESIUM OXIDE. [Concomitant]
     Active Substance: MAGNESIUM OXIDE
     Dosage: 330 MG, UNK
     Route: 048
     Dates: start: 20110317

REACTIONS (2)
  - Femur fracture [Not Recovered/Not Resolved]
  - Femur fracture [Not Recovered/Not Resolved]

NARRATIVE: CASE EVENT DATE: 20150826
